FAERS Safety Report 8962153 (Version 1)
Quarter: 2012Q4

REPORT INFORMATION
  Report Type: 
  Country: IT (occurrence: IT)
  Receive Date: 20121212
  Receipt Date: 20121212
  Transmission Date: 20130627
  Serious: Yes (Life-Threatening, Hospitalization, Other)
  Sender: FDA-Public Use
  Company Number: IT-ASTRAZENECA-2012SE91638

PATIENT
  Age: 33 Year
  Sex: Female

DRUGS (6)
  1. ESOPRAL [Suspect]
     Dosage: 80 mg Once/Single administration
     Route: 048
     Dates: start: 20121106, end: 20121106
  2. VALIUM [Suspect]
     Dosage: 5 mg/ml oral solution, drops, 40 ml once a week, 5x20 mg
     Route: 048
     Dates: start: 20121106, end: 20121106
  3. LYRICA [Suspect]
     Dosage: 675 mg Once/Single administration
     Route: 048
     Dates: start: 20121106, end: 20121106
  4. UNSPECIFIED [Suspect]
     Dosage: A CUP
  5. SERTRALINE [Concomitant]
     Indication: DEPRESSION
     Route: 048
  6. SEROQUEL [Concomitant]
     Indication: DEPRESSION
     Route: 048

REACTIONS (4)
  - Suicide attempt [Unknown]
  - Toxicity to various agents [Recovering/Resolving]
  - Psychomotor hyperactivity [Recovering/Resolving]
  - Slow response to stimuli [Recovering/Resolving]
